FAERS Safety Report 8183650-9 (Version None)
Quarter: 2012Q1

REPORT INFORMATION
  Report Type: 
  Country: None (occurrence: None)
  Receive Date: 20120202
  Receipt Date: 20111027
  Transmission Date: 20120608
  Serious: Yes (Other)
  Sender: FDA-Public Use
  Company Number: KAD201110-000048

PATIENT
  Age: 40 Year
  Sex: Male

DRUGS (4)
  1. VICTRELIS [Suspect]
     Indication: HEPATITIS C
     Dosage: 800 MG, TID, PO
     Route: 048
     Dates: start: 20110817
  2. ACETAMINOPHEN [Concomitant]
  3. RIBAVIRIN [Suspect]
     Indication: HEPATITIS C
  4. PEG-INTRON [Suspect]
     Indication: HEPATITIS C

REACTIONS (1)
  - ANAEMIA [None]
